FAERS Safety Report 8976670 (Version 7)
Quarter: 2013Q4

REPORT INFORMATION
  Report Type: Report from Study
  Country: JP (occurrence: JP)
  Receive Date: 20121220
  Receipt Date: 20131017
  Transmission Date: 20140711
  Serious: Yes (Other)
  Sender: FDA-Public Use
  Company Number: JP-PFIZER INC-2012318656

PATIENT
  Age: 60 Year
  Sex: Female
  Weight: 49 kg

DRUGS (2)
  1. XALKORI [Suspect]
     Indication: NON-SMALL CELL LUNG CANCER
     Dosage: 250 MG, 2X/DAY
     Route: 048
     Dates: start: 20121012, end: 20121213
  2. LOXONIN [Concomitant]
     Dosage: 60 MG, AS NEEDED
     Route: 048
     Dates: start: 20121026

REACTIONS (1)
  - Interstitial lung disease [Recovered/Resolved]
